FAERS Safety Report 23102412 (Version 1)
Quarter: 2023Q4

REPORT INFORMATION
  Report Type: Spontaneous
  Country: IT (occurrence: IT)
  Receive Date: 20231025
  Receipt Date: 20231025
  Transmission Date: 20240110
  Serious: Yes (Death, Other)
  Sender: FDA-Public Use
  Company Number: None

PATIENT
  Age: 70 Year
  Sex: Male
  Weight: 70 kg

DRUGS (3)
  1. RIFADIN [Suspect]
     Active Substance: RIFAMPIN
     Indication: Latent tuberculosis
     Dosage: 600 MG, QD
     Route: 048
     Dates: start: 20180409, end: 20180623
  2. IXEKIZUMAB [Suspect]
     Active Substance: IXEKIZUMAB
     Indication: Psoriasis
     Dosage: 80 MG, QCY
     Route: 042
     Dates: start: 20180409, end: 20180622
  3. ISONIAZID [Suspect]
     Active Substance: ISONIAZID
     Indication: Psoriasis
     Dosage: 450 MG, QD
     Route: 048
     Dates: start: 20180409, end: 20180622

REACTIONS (1)
  - Hepatic failure [Fatal]

NARRATIVE: CASE EVENT DATE: 20180622
